FAERS Safety Report 4394788-6 (Version None)
Quarter: 2004Q2

REPORT INFORMATION
  Report Type: 
  Country: None (occurrence: None)
  Receive Date: 20040621
  Receipt Date: 20031024
  Transmission Date: 20050107
  Serious: Yes (Hospitalization, Other)
  Sender: FDA-Public Use
  Company Number: USA-2003-0010585

PATIENT
  Age: 59 Year
  Sex: Female
  Weight: 95.2 kg

DRUGS (21)
  1. OXYCONTIN [Suspect]
     Indication: CANCER PAIN
     Dosage: 20 MG, TID, ORAL
     Route: 048
  2. OXYIR [Concomitant]
  3. COUMADIN [Concomitant]
  4. ZOLOFT [Concomitant]
  5. SEROQUEL [Concomitant]
  6. NEURONTIN [Concomitant]
  7. ZOCOR [Concomitant]
  8. VIOXX [Concomitant]
  9. MYSOLINE ^ICI^ [Concomitant]
  10. PHENERGAN ^NATRAPHARM^ [Concomitant]
  11. METAMUCIL-2 [Concomitant]
  12. EXTRA STRENGTH TYLENOL [Concomitant]
  13. ZESTORETIC [Concomitant]
  14. REGLAN [Concomitant]
  15. NAPROSYN [Concomitant]
  16. SOMA [Concomitant]
  17. SENOKOT [Concomitant]
  18. KLONOPIN [Concomitant]
  19. NITROGLYCERIN ^A.L.^ [Concomitant]
  20. MIRALAX [Concomitant]
  21. FERGON [Concomitant]

REACTIONS (42)
  - ABASIA [None]
  - AGITATION [None]
  - ANXIETY [None]
  - ASTHENIA [None]
  - BALANCE DISORDER [None]
  - BURNING SENSATION [None]
  - CARPAL TUNNEL SYNDROME [None]
  - CHEST PAIN [None]
  - CONSTIPATION [None]
  - CRYING [None]
  - DEPRESSION [None]
  - DIARRHOEA [None]
  - DRUG ABUSER [None]
  - DRUG DEPENDENCE [None]
  - DRUG INEFFECTIVE [None]
  - DRUG WITHDRAWAL SYNDROME [None]
  - DYSPHAGIA [None]
  - DYSPNOEA [None]
  - DYSSTASIA [None]
  - EARLY MORNING AWAKENING [None]
  - EATING DISORDER [None]
  - EMOTIONAL DISTRESS [None]
  - FATIGUE [None]
  - FORMICATION [None]
  - GASTROINTESTINAL MOTILITY DISORDER [None]
  - HEADACHE [None]
  - HYPERHIDROSIS [None]
  - HYPERSENSITIVITY [None]
  - ILL-DEFINED DISORDER [None]
  - KAPOSI'S SARCOMA [None]
  - MOOD ALTERED [None]
  - MUSCULOSKELETAL STIFFNESS [None]
  - NAUSEA [None]
  - NOCTURIA [None]
  - NUCLEAR MAGNETIC RESONANCE IMAGING ABNORMAL [None]
  - ODYNOPHAGIA [None]
  - OEDEMA PERIPHERAL [None]
  - PAIN [None]
  - PALPITATIONS [None]
  - RESTLESSNESS [None]
  - SUICIDAL IDEATION [None]
  - TREMOR [None]
